FAERS Safety Report 4277371-2 (Version None)
Quarter: 2004Q1

REPORT INFORMATION
  Report Type: 
  Country: None (occurrence: None)
  Receive Date: 20040122
  Receipt Date: 20031203
  Transmission Date: 20041129
  Serious: Yes (Death, Hospitalization)
  Sender: FDA-Public Use
  Company Number: 200313119DE

PATIENT
  Age: 52 Year
  Sex: Female

DRUGS (8)
  1. DOCETAXEL [Suspect]
     Indication: BREAST CANCER STAGE IV
     Route: 042
     Dates: start: 20030604, end: 20031119
  2. KEVATRIL [Concomitant]
     Route: 042
     Dates: start: 20030604
  3. TAVEGIL [Concomitant]
     Route: 042
     Dates: start: 20030604
  4. CIMETIDIN [Concomitant]
     Route: 042
     Dates: start: 20030604
  5. ZOMETA [Concomitant]
     Route: 042
     Dates: start: 20030604
  6. PARACODIN [Concomitant]
     Route: 048
     Dates: start: 20030820
  7. COTRIM [Concomitant]
     Dates: start: 20030903
  8. TOREM [Concomitant]
     Dates: start: 20031005

REACTIONS (9)
  - ASCITES [None]
  - BREAST CANCER METASTATIC [None]
  - CAPILLARY LEAK SYNDROME [None]
  - DRUG TOXICITY [None]
  - EXANTHEM [None]
  - HAEMOGLOBIN DECREASED [None]
  - HYPOPROTEINAEMIA [None]
  - OEDEMA [None]
  - PLEURAL EFFUSION [None]
